FAERS Safety Report 4696779-4 (Version None)
Quarter: 2005Q2

REPORT INFORMATION
  Report Type: 
  Country: None (occurrence: None)
  Receive Date: 20050120
  Receipt Date: 20050120
  Transmission Date: 20051028
  Serious: Yes (Hospitalization, Disabling)
  Sender: FDA-Public Use
  Company Number: None

PATIENT
  Age: 4 Year
  Sex: Female

DRUGS (2)
  1. MYSOLINE [Suspect]
     Dosage: ONE PO AM  THREE PO PM  250
     Route: 048
  2. TEGRETOL [Suspect]
     Dosage: 200 MG PO BID
     Route: 048

REACTIONS (1)
  - CONVULSION [None]
